FAERS Safety Report 4681515-8 (Version None)
Quarter: 2005Q2

REPORT INFORMATION
  Report Type: 
  Country: None (occurrence: None)
  Receive Date: 20050603
  Receipt Date: 20050524
  Transmission Date: 20051028
  Serious: Yes (Other)
  Sender: FDA-Public Use
  Company Number: IE-SANOFI-SYNTHELABO-A01200503561

PATIENT
  Sex: Female

DRUGS (2)
  1. PLAVIX [Suspect]
     Indication: DRUG USE FOR UNKNOWN INDICATION
     Dosage: UNK
     Route: 048
     Dates: end: 20050101
  2. PLAVIX [Suspect]
     Dosage: UNK
     Route: 048
     Dates: start: 20050201

REACTIONS (4)
  - GASTROINTESTINAL ULCER [None]
  - SINUSITIS [None]
  - THERAPY NON-RESPONDER [None]
  - VISUAL DISTURBANCE [None]
